FAERS Safety Report 12281735 (Version 1)
Quarter: 2016Q2

REPORT INFORMATION
  Report Type: Spontaneous
  Country: US (occurrence: None)
  Receive Date: 20160418
  Receipt Date: 20160418
  Transmission Date: 20160815
  Serious: Yes (Life-Threatening, Hospitalization, Disabling, Other)
  Sender: FDA-Public Use
  Company Number: None

PATIENT
  Age: 66 Year
  Sex: Female
  Weight: 65.77 kg

DRUGS (1)
  1. SEROQUEL [Suspect]
     Active Substance: QUETIAPINE FUMARATE

REACTIONS (7)
  - Therapy cessation [None]
  - Gastric ulcer [None]
  - Drug dose omission [None]
  - Cerebrovascular accident [None]
  - Road traffic accident [None]
  - Disorientation [None]
  - Social avoidant behaviour [None]
